FAERS Safety Report 6152086-4 (Version None)
Quarter: 2009Q2

REPORT INFORMATION
  Report Type: 
  Country: None (occurrence: None)
  Receive Date: 20090410
  Receipt Date: 20090402
  Transmission Date: 20091009
  Serious: Yes (Death, Hospitalization, Other)
  Sender: FDA-Public Use
  Company Number: US-PURDUE-USA_2009_0036953

PATIENT
  Sex: Male

DRUGS (2)
  1. MS CONTIN [Suspect]
     Indication: PAIN
     Dosage: UNK, Q12H
  2. MORPHINE SULFATE [Suspect]
     Indication: BREAKTHROUGH PAIN

REACTIONS (3)
  - ALCOHOL ABUSE [None]
  - HEPATIC FAILURE [None]
  - RENAL FAILURE [None]
